FAERS Safety Report 18683926 (Version 1)
Quarter: 2020Q4

REPORT INFORMATION
  Report Type: Spontaneous
  Country: ES (occurrence: ES)
  Receive Date: 20201230
  Receipt Date: 20201230
  Transmission Date: 20210114
  Serious: Yes (Other)
  Sender: FDA-Public Use
  Company Number: ES-009507513-2012ESP012028

PATIENT
  Sex: Male

DRUGS (2)
  1. ALENDRONATE SODIUM. [Suspect]
     Active Substance: ALENDRONATE SODIUM
     Indication: DIVERTICULITIS OESOPHAGEAL
     Dosage: DOSE: 2 (UNITS NOT PROVIDED), QD
     Route: 065
  2. ALENDRONATE SODIUM. [Suspect]
     Active Substance: ALENDRONATE SODIUM
     Indication: DIVERTICULITIS OESOPHAGEAL
     Dosage: DOSE: 1 (UNITS NOT PROVIDED), QW
     Route: 065

REACTIONS (2)
  - Idiopathic pulmonary fibrosis [Not Recovered/Not Resolved]
  - Medication error [Not Recovered/Not Resolved]
